FAERS Safety Report 9011174 (Version 1)
Quarter: 2013Q1

REPORT INFORMATION
  Report Type: Spontaneous
  Country: US (occurrence: US)
  Receive Date: 20130109
  Receipt Date: 20130109
  Transmission Date: 20140127
  Serious: Yes (Death)
  Sender: FDA-Public Use
  Company Number: US-PFIZER INC-2013005901

PATIENT
  Age: 52 Year
  Sex: Female

DRUGS (3)
  1. DIAZEPAM [Suspect]
  2. ALPRAZOLAM [Suspect]
  3. ACETAMINOPHEN / HYDROCODONE [Suspect]

REACTIONS (1)
  - Drug abuse [Fatal]
